FAERS Safety Report 5513807-4 (Version None)
Quarter: 2007Q4

REPORT INFORMATION
  Report Type: 
  Country: None (occurrence: None)
  Receive Date: 20071105
  Receipt Date: 20070920
  Transmission Date: 20080405
  Serious: Yes (Other)
  Sender: FDA-Public Use
  Company Number: PHEH2007US12646

PATIENT
  Age: 79 Year
  Sex: Female

DRUGS (4)
  1. EXELON [Suspect]
     Indication: DEMENTIA ALZHEIMER'S TYPE
     Dosage: 4.6 MG, QD, TRANSDERMAL
     Route: 062
     Dates: start: 20070917, end: 20070919
  2. SEROQUEL [Concomitant]
  3. TRAZODONE HCL [Concomitant]
  4. PROPRANOLOL [Concomitant]

REACTIONS (4)
  - ASTHENIA [None]
  - HALLUCINATION, AUDITORY [None]
  - NAUSEA [None]
  - TREMOR [None]
